FAERS Safety Report 4992790-4 (Version None)
Quarter: 2006Q1

REPORT INFORMATION
  Report Type: 
  Country: None (occurrence: None)
  Receive Date: 20060315
  Receipt Date: 20050131
  Transmission Date: 20060701
  Serious: Yes (Hospitalization)
  Sender: FDA-Public Use
  Company Number: US_0502111697

PATIENT
  Age: 54 Year
  Sex: Female
  Weight: 71.7 kg

DRUGS (10)
  1. GEMCITABINE HYDROCHLORIDE (GEMCITABINE HYDROCHLORIDE) VIAL [Suspect]
     Indication: PANCREATIC CARCINOMA
  2. PROCRIT [Concomitant]
  3. PRAVACHOL [Concomitant]
  4. PROTONIX [Concomitant]
  5. FERROUS SULFATE TAB [Concomitant]
  6. ONDANSETRON HYDROCHLORIDE [Concomitant]
  7. PROCHLORPERAZINE EDISYLATE [Concomitant]
  8. DEXAMETHASONE [Concomitant]
  9. ANZEMET [Concomitant]
  10. FILGRASTIM (FILGRASTIM) [Concomitant]

REACTIONS (2)
  - NAUSEA [None]
  - VOMITING [None]
